FAERS Safety Report 7699594-2 (Version None)
Quarter: 2011Q3

REPORT INFORMATION
  Report Type: 
  Country: None (occurrence: None)
  Receive Date: 20110822
  Receipt Date: 20110722
  Transmission Date: 20111222
  Serious: Yes (Other)
  Sender: FDA-Public Use
  Company Number: JP-BIOGENIDEC-2010BI039868

PATIENT
  Age: 43 Year
  Sex: Female

DRUGS (6)
  1. AVONEX [Suspect]
     Route: 030
     Dates: start: 20100518, end: 20101021
  2. AVONEX [Suspect]
     Route: 030
     Dates: start: 20101022
  3. AFTACH [Concomitant]
     Indication: PRODUCT USED FOR UNKNOWN INDICATION
     Dates: start: 20100308, end: 20100314
  4. INFREE S [Concomitant]
     Indication: PRODUCT USED FOR UNKNOWN INDICATION
     Dates: start: 20100308, end: 20100314
  5. AVONEX [Suspect]
     Indication: RELAPSING-REMITTING MULTIPLE SCLEROSIS
     Route: 030
     Dates: start: 20100301, end: 20100413
  6. FAMOTIDINE [Concomitant]
     Indication: PRODUCT USED FOR UNKNOWN INDICATION
     Dates: start: 20100301, end: 20100413

REACTIONS (5)
  - PYREXIA [None]
  - HEADACHE [None]
  - RHINITIS ALLERGIC [None]
  - HEPATIC FUNCTION ABNORMAL [None]
  - CONSTIPATION [None]
